FAERS Safety Report 4542239-0 (Version None)
Quarter: 2004Q4

REPORT INFORMATION
  Report Type: 
  Country: None (occurrence: None)
  Receive Date: 20041227
  Receipt Date: 20041209
  Transmission Date: 20050328
  Serious: Yes (Hospitalization)
  Sender: FDA-Public Use
  Company Number: 192476

PATIENT
  Age: 42 Year
  Sex: Female
  Weight: 58.9676 kg

DRUGS (10)
  1. AVONEX [Suspect]
     Indication: MULTIPLE SCLEROSIS
     Dosage: 30 UG;QW;IM
     Route: 030
     Dates: start: 20021121, end: 20030301
  2. AVONEX [Suspect]
     Indication: MULTIPLE SCLEROSIS
     Dosage: 30 UG; QW; IM
     Route: 030
     Dates: start: 20040108, end: 20040128
  3. AVONEX [Suspect]
     Indication: MULTIPLE SCLEROSIS
     Dosage: 30 UG; QW;IM
     Route: 030
     Dates: start: 20040203, end: 20040203
  4. AVONEX [Suspect]
     Indication: MULTIPLE SCLEROSIS
     Dosage: 30 UG;QW;IM
     Route: 030
     Dates: start: 20040101
  5. AMANTADINE [Concomitant]
  6. VALIUM [Concomitant]
  7. NEURONTIN [Concomitant]
  8. BACLOFEN [Concomitant]
  9. ZOLOFT [Concomitant]
  10. PROVIGIL [Concomitant]

REACTIONS (16)
  - APHASIA [None]
  - BLOOD PRESSURE INCREASED [None]
  - BREAST CANCER FEMALE [None]
  - COORDINATION ABNORMAL [None]
  - DIAPHRAGM MUSCLE WEAKNESS [None]
  - DIFFICULTY IN WALKING [None]
  - DYSPNOEA [None]
  - DYSTONIA [None]
  - ELECTROCARDIOGRAM ABNORMAL [None]
  - FATIGUE [None]
  - HEART RATE INCREASED [None]
  - INJECTION SITE PAIN [None]
  - MUSCULAR WEAKNESS [None]
  - RESPIRATORY DISTRESS [None]
  - TREMOR [None]
  - VOCAL CORD DISORDER [None]
